FAERS Safety Report 15752763 (Version 9)
Quarter: 2019Q1

REPORT INFORMATION
  Report Type: Spontaneous
  Country: DE (occurrence: DE)
  Receive Date: 20181221
  Receipt Date: 20190218
  Transmission Date: 20190417
  Serious: Yes (Hospitalization)
  Sender: FDA-Public Use
  Company Number: PHHY2018DE190673

PATIENT
  Age: 45 Year
  Sex: Male
  Weight: 112 kg

DRUGS (17)
  1. PREDNISOLON [Suspect]
     Active Substance: PREDNISOLONE
     Indication: CROHN^S DISEASE
     Dosage: 10 MG, QD
     Route: 065
     Dates: end: 20181113
  2. FLIXABI [Suspect]
     Active Substance: INFLIXIMAB
     Indication: CROHN^S DISEASE
     Dosage: 1100 MG, UNK
     Route: 065
  3. FLIXABI [Suspect]
     Active Substance: INFLIXIMAB
     Dosage: 1100 MG, UNK
     Route: 065
     Dates: start: 20181106, end: 20181106
  4. NOVALGIN [Concomitant]
     Dosage: 500MG PRN
     Route: 065
  5. PENTASA [Suspect]
     Active Substance: MESALAMINE
     Indication: CROHN^S DISEASE
     Dosage: 2 DF, BID (2-0-2, AS NEEDED)
     Route: 048
  6. METHOTREXATE. [Suspect]
     Active Substance: METHOTREXATE
     Indication: CROHN^S DISEASE
     Dosage: 15 MG, QD
     Route: 065
     Dates: end: 20181113
  7. PREDNISOLON [Suspect]
     Active Substance: PREDNISOLONE
     Route: 048
  8. FLIXABI [Suspect]
     Active Substance: INFLIXIMAB
     Dosage: 1100 MG, UNK
     Route: 065
     Dates: start: 20181008
  9. NOVALGIN [Concomitant]
     Indication: PAIN
     Dosage: 500 MG, PRN
     Route: 065
  10. PANTOPRAZOLE [Concomitant]
     Active Substance: PANTOPRAZOLE
     Indication: GASTRIC DISORDER
     Dosage: 40 MG, QD
     Route: 048
  11. FLIXABI [Suspect]
     Active Substance: INFLIXIMAB
     Dosage: 1100 MG, UNK
     Route: 065
     Dates: start: 20180831
  12. MESALAZIN [Suspect]
     Active Substance: MESALAMINE
     Indication: CROHN^S DISEASE
     Dosage: 1000 MG, BID (2-0-2 )
     Route: 065
  13. MIRTAZAPINE. [Concomitant]
     Active Substance: MIRTAZAPINE
     Indication: DEPRESSION
     Dosage: 30 MG, QD
     Route: 065
  14. FOLSAN [Concomitant]
     Active Substance: FOLIC ACID
     Indication: PRODUCT USED FOR UNKNOWN INDICATION
     Route: 048
  15. METHOTREXATE. [Suspect]
     Active Substance: METHOTREXATE
     Route: 058
     Dates: end: 20181106
  16. REMERGIL [Concomitant]
     Active Substance: MIRTAZAPINE
     Indication: DEPRESSION
     Dosage: 30 MG, QD
     Route: 048
  17. METAMIZOLE [Concomitant]
     Active Substance: METAMIZOLE
     Indication: PRODUCT USED FOR UNKNOWN INDICATION
     Dosage: 500 MG, PRN (AS NEEDED, HIGHEST DAILY DOSE 4,000 MG)
     Route: 048

REACTIONS (1)
  - Ileus [Recovered/Resolved]

NARRATIVE: CASE EVENT DATE: 20181110
